FAERS Safety Report 20677096 (Version 1)
Quarter: 2022Q2

REPORT INFORMATION
  Report Type: Spontaneous
  Country: JP (occurrence: JP)
  Receive Date: 20220406
  Receipt Date: 20220406
  Transmission Date: 20220720
  Serious: Yes (Hospitalization, Other)
  Sender: FDA-Public Use
  Company Number: JP-BRISTOL-MYERS SQUIBB COMPANY-BMS-2021-032475

PATIENT
  Age: 64 Year
  Sex: Male
  Weight: 76.7 kg

DRUGS (14)
  1. YERVOY [Suspect]
     Active Substance: IPILIMUMAB
     Indication: Non-small cell lung cancer recurrent
     Dosage: 80 MILLIGRAM, ONE TIME DOSE (Q6W)
     Route: 041
     Dates: start: 20210310, end: 20210310
  2. YERVOY [Suspect]
     Active Substance: IPILIMUMAB
     Dosage: 80 MILLIGRAM, ONE TIME DOSE
     Route: 041
     Dates: start: 20210428, end: 20210428
  3. OPDIVO [Suspect]
     Active Substance: NIVOLUMAB
     Indication: Non-small cell lung cancer recurrent
     Dosage: 360 MILLIGRAM, Q3WK
     Route: 041
     Dates: start: 20210310, end: 20210331
  4. OPDIVO [Suspect]
     Active Substance: NIVOLUMAB
     Dosage: 360 MILLIGRAM
     Route: 041
     Dates: start: 20210401, end: 20210401
  5. OPDIVO [Suspect]
     Active Substance: NIVOLUMAB
     Dosage: 360 MILLIGRAM, ONE TIME DOSE (Q3W)
     Route: 041
     Dates: start: 20210428, end: 20210521
  6. CARBOPLATIN [Suspect]
     Active Substance: CARBOPLATIN
     Indication: Non-small cell lung cancer recurrent
     Dosage: 410 MILLIGRAM
     Route: 041
     Dates: start: 20210310, end: 20210331
  7. CARBOPLATIN [Suspect]
     Active Substance: CARBOPLATIN
     Dosage: 410 MILLIGRAM
     Route: 041
     Dates: start: 20210401, end: 20210401
  8. DECADRON [Suspect]
     Active Substance: DEXAMETHASONE
     Indication: Nausea
     Dosage: 8 MG, EVERYDAY
     Route: 048
     Dates: start: 20210311, end: 20210312
  9. DECADRON [Suspect]
     Active Substance: DEXAMETHASONE
     Dosage: 2 MG, EVERYDAY
     Route: 048
     Dates: start: 20210313, end: 20210317
  10. DECADRON [Suspect]
     Active Substance: DEXAMETHASONE
     Dosage: 4 MG, Q12H
     Route: 048
     Dates: start: 20210401
  11. ALIMTA [Suspect]
     Active Substance: PEMETREXED DISODIUM
     Indication: Non-small cell lung cancer recurrent
     Dosage: 950 MG
     Route: 041
     Dates: start: 20210310, end: 20210331
  12. ALIMTA [Suspect]
     Active Substance: PEMETREXED DISODIUM
     Dosage: 950 MILLIGRAM
     Route: 041
     Dates: start: 20210401, end: 20210401
  13. OLANZAPINE [Suspect]
     Active Substance: OLANZAPINE
     Indication: Decreased appetite
     Dosage: 5 MG, EVERYDAY
     Route: 048
     Dates: start: 20210313, end: 20210321
  14. PANVITAN [ASCORBIC ACID;CALCIUM PANTOTHENATE;CYANOCOBALAMIN;ERGOCALCIF [Concomitant]
     Indication: Product used for unknown indication
     Dosage: 1 GRAM, QD
     Route: 048
     Dates: start: 20210301, end: 20210422

REACTIONS (7)
  - Toxic skin eruption [Recovered/Resolved]
  - Interstitial lung disease [Recovering/Resolving]
  - Liver disorder [Recovered/Resolved]
  - Nausea [Recovered/Resolved]
  - Decreased appetite [Recovered/Resolved]
  - Pyrexia [Unknown]
  - Inflammation [Unknown]

NARRATIVE: CASE EVENT DATE: 20210312
